FAERS Safety Report 12712290 (Version 1)
Quarter: 2016Q3

REPORT INFORMATION
  Report Type: Spontaneous
  Country: US (occurrence: US)
  Receive Date: 20160902
  Receipt Date: 20160902
  Transmission Date: 20161109
  Serious: No
  Sender: FDA-Public Use
  Company Number: US-SEBELA IRELAND LIMITED-2016SEB01428

PATIENT

DRUGS (13)
  1. NORVASC [Concomitant]
     Active Substance: AMLODIPINE BESYLATE
     Dosage: 5 MG, UNK
  2. LOSARTAN AND HYDROCHLOROTHIAZIDE [Concomitant]
     Active Substance: HYDROCHLOROTHIAZIDE\LOSARTAN POTASSIUM
     Dosage: 50-12.5 MG
  3. ZOLARD [Concomitant]
     Dosage: 20 MG, UNK
  4. PEXEVA [Suspect]
     Active Substance: PAROXETINE MESYLATE
     Indication: DEPRESSION
     Dosage: 20 MG, QD
     Route: 048
  5. PEXEVA [Suspect]
     Active Substance: PAROXETINE MESYLATE
     Dosage: 60 MG, QD
     Route: 048
     Dates: end: 2016
  6. PEXEVA [Suspect]
     Active Substance: PAROXETINE MESYLATE
     Dosage: HALF OF 20MG TABLET, UNKNOWN
     Route: 048
     Dates: start: 2016, end: 20160429
  7. INTUNIV [Concomitant]
     Active Substance: GUANFACINE HYDROCHLORIDE
     Dosage: 4 MG, UNK
  8. PEXEVA [Suspect]
     Active Substance: PAROXETINE MESYLATE
     Dosage: THREE QUARTERS OF 20MG, UNKNOWN
     Route: 048
     Dates: start: 2016, end: 2016
  9. AMBIEN [Concomitant]
     Active Substance: ZOLPIDEM TARTRATE
     Dosage: 5 MG, BEDTIME
  10. PEXEVA [Suspect]
     Active Substance: PAROXETINE MESYLATE
     Dosage: TWO, 20MG TABLETS, UNK
     Route: 048
     Dates: start: 2016, end: 2016
  11. PEXEVA [Suspect]
     Active Substance: PAROXETINE MESYLATE
     Dosage: ONE 20MG TABLET WITH ANOTHER HALF 20MG TABLET, UNKNOWN
     Route: 048
     Dates: start: 2016, end: 2016
  12. LEVOTHYROXINE SODIUM. [Concomitant]
     Active Substance: LEVOTHYROXINE SODIUM
     Dosage: 200 ?G, UNK
  13. LAMICTAL [Concomitant]
     Active Substance: LAMOTRIGINE
     Dosage: 200 MG, BID

REACTIONS (7)
  - Irritability [Recovering/Resolving]
  - Off label use [Unknown]
  - Wrong technique in product usage process [Recovered/Resolved]
  - Prescribed overdose [Recovered/Resolved]
  - Drug dose omission [Recovered/Resolved]
  - Anger [Recovered/Resolved]
  - Paraesthesia [Not Recovered/Not Resolved]

NARRATIVE: CASE EVENT DATE: 20160504
